FAERS Safety Report 8286924-6 (Version None)
Quarter: 2012Q2

REPORT INFORMATION
  Report Type: 
  Country: None (occurrence: None)
  Receive Date: 20120416
  Receipt Date: 20120410
  Transmission Date: 20120825
  Serious: Yes (Death, Other)
  Sender: FDA-Public Use
  Company Number: TW-ASTELLAS-2012JP003098

PATIENT
  Age: 68 Year
  Sex: Female

DRUGS (6)
  1. TACROLIMUS [Suspect]
     Route: 065
  2. STEROIDS [Suspect]
     Route: 065
  3. STEROIDS [Suspect]
     Route: 065
  4. BORTEZOMIB [Suspect]
     Dosage: 1.3 MG/M2, UNKNOWN/D
     Route: 065
  5. RITUXIMAB [Suspect]
     Indication: TRANSPLANT REJECTION
     Route: 065
  6. MYCOPHENOLATE MOFETIL [Suspect]
     Route: 065

REACTIONS (3)
  - PNEUMONIA [None]
  - TRANSPLANT REJECTION [None]
  - DRUG INEFFECTIVE [None]
